FAERS Safety Report 9632285 (Version 1)
Quarter: 2013Q4

REPORT INFORMATION
  Report Type: Spontaneous
  Country: CH (occurrence: CH)
  Receive Date: 20131018
  Receipt Date: 20131018
  Transmission Date: 20140711
  Serious: Yes (Other)
  Sender: FDA-Public Use
  Company Number: CH-PFIZER INC-2013297082

PATIENT
  Sex: 0

DRUGS (2)
  1. LYRICA [Suspect]
     Indication: ANXIETY DISORDER
     Dosage: 400 AND 600 MG TAKEN ONLY ONCE DAILY
  2. LYRICA [Suspect]
     Indication: MAJOR DEPRESSION

REACTIONS (1)
  - Self injurious behaviour [Unknown]
